FAERS Safety Report 4369631-1 (Version None)
Quarter: 2004Q2

REPORT INFORMATION
  Report Type: 
  Country: None (occurrence: None)
  Receive Date: 20040603
  Receipt Date: 20040517
  Transmission Date: 20050107
  Serious: Yes (Hospitalization)
  Sender: FDA-Public Use
  Company Number: US-AMGEN-US076748

PATIENT
  Sex: Female
  Weight: 143 kg

DRUGS (2)
  1. EPOGEN [Suspect]
     Indication: DIALYSIS
     Dates: start: 20031119
  2. VENOFER [Concomitant]
     Route: 042

REACTIONS (6)
  - CATHETER RELATED INFECTION [None]
  - GRAFT INFECTION [None]
  - IRON DEFICIENCY [None]
  - SEPSIS [None]
  - STAPHYLOCOCCAL INFECTION [None]
  - THERAPEUTIC RESPONSE DECREASED [None]
